FAERS Safety Report 14352479 (Version 2)
Quarter: 2018Q1

REPORT INFORMATION
  Report Type: Spontaneous
  Country: US (occurrence: US)
  Receive Date: 20180104
  Receipt Date: 20180130
  Transmission Date: 20180509
  Serious: Yes (Death, Hospitalization)
  Sender: FDA-Public Use
  Company Number: US-ACTELION-A-US2018-165216

PATIENT
  Age: 76 Year
  Sex: Female
  Weight: 46.26 kg

DRUGS (2)
  1. TRACLEER [Suspect]
     Active Substance: BOSENTAN
     Indication: PULMONARY ARTERIAL HYPERTENSION
     Dosage: 125 MG, BID
     Route: 048
  2. REMODULIN [Concomitant]
     Active Substance: TREPROSTINIL
     Indication: PRODUCT USED FOR UNKNOWN INDICATION
     Dosage: UNK
     Route: 058
     Dates: end: 20171224

REACTIONS (5)
  - Renal disorder [Fatal]
  - Pulmonary arterial hypertension [Fatal]
  - Liver disorder [Fatal]
  - Dyspnoea [Unknown]
  - Spinal fracture [Unknown]

NARRATIVE: CASE EVENT DATE: 20171224
